FAERS Safety Report 20774068 (Version 1)
Quarter: 2022Q2

REPORT INFORMATION
  Report Type: Spontaneous
  Country: GB (occurrence: GB)
  Receive Date: 20220502
  Receipt Date: 20220502
  Transmission Date: 20220721
  Serious: Yes (Hospitalization, Other)
  Sender: FDA-Public Use
  Company Number: GB-MHRA-MED-202204261104424670-KLEWK

PATIENT
  Age: 46 Year
  Sex: Female

DRUGS (1)
  1. INDAPAMIDE [Suspect]
     Active Substance: INDAPAMIDE
     Indication: Product used for unknown indication
     Dosage: 7 DOSAGE FORM, QD (2.5MG SEVEN TABLETS DAILY)

REACTIONS (4)
  - Medication error [Unknown]
  - Malaise [Recovered/Resolved]
  - Joint swelling [Recovered/Resolved]
  - Vomiting [Recovered/Resolved]

NARRATIVE: CASE EVENT DATE: 20220421
